FAERS Safety Report 21673171 (Version 2)
Quarter: 2023Q1

REPORT INFORMATION
  Report Type: Spontaneous
  Country: US (occurrence: US)
  Receive Date: 20221202
  Receipt Date: 20230111
  Transmission Date: 20230418
  Serious: Yes (Hospitalization, Other)
  Sender: FDA-Public Use
  Company Number: US-BAYER-2022A162613

PATIENT
  Age: 78 Year
  Sex: Male

DRUGS (1)
  1. CIPROFLOXACIN [Suspect]
     Active Substance: CIPROFLOXACIN
     Dosage: UNK
     Route: 048
     Dates: start: 20221102

REACTIONS (5)
  - Dizziness [Unknown]
  - Hallucination [Unknown]
  - Psychotic disorder [Unknown]
  - Fall [Recovering/Resolving]
  - Off label use [None]

NARRATIVE: CASE EVENT DATE: 20221109
